FAERS Safety Report 6067042-4 (Version None)
Quarter: 2009Q1

REPORT INFORMATION
  Report Type: 
  Country: None (occurrence: None)
  Receive Date: 20090205
  Receipt Date: 20090202
  Transmission Date: 20090719
  Serious: Yes (Other)
  Sender: FDA-Public Use
  Company Number: DE-AVENTIS-200813209DE

PATIENT
  Age: 78 Year
  Sex: Male

DRUGS (8)
  1. ARAVA [Suspect]
     Indication: RHEUMATOID ARTHRITIS
     Route: 048
     Dates: start: 20080714
  2. FALITHROM [Suspect]
     Dosage: DOSE: NOT REPORTED
  3. METOPROLOL SUCCINATE [Concomitant]
     Route: 048
  4. SIMVASTATIN [Concomitant]
     Route: 048
  5. LANSOPRAZOLE [Concomitant]
     Route: 048
  6. SPIRIVA [Concomitant]
     Indication: PULMONARY FIBROSIS
     Dosage: DOSE: NOT REPORTED
  7. VIANI [Concomitant]
     Indication: PULMONARY FIBROSIS
     Dosage: DOSE: NOT REPORTED
  8. PREDNISOLONE [Concomitant]
     Indication: RHEUMATOID ARTHRITIS
     Route: 048

REACTIONS (2)
  - DRUG INTERACTION [None]
  - PROTHROMBIN TIME PROLONGED [None]
